FAERS Safety Report 4747911-5 (Version None)
Quarter: 2005Q3

REPORT INFORMATION
  Report Type: 
  Country: None (occurrence: None)
  Receive Date: 20050816
  Receipt Date: 20050601
  Transmission Date: 20060218
  Serious: Yes (Other)
  Sender: FDA-Public Use
  Company Number: S05-CAN-02847-01

PATIENT
  Age: 45 Year
  Sex: Female

DRUGS (2)
  1. CELEXA [Suspect]
  2. CELEXA [Suspect]
     Dosage: 1 G ONCE

REACTIONS (7)
  - ABDOMINAL PAIN [None]
  - DIARRHOEA [None]
  - INTENTIONAL MISUSE [None]
  - MELAENA [None]
  - OVERDOSE [None]
  - SUICIDE ATTEMPT [None]
  - VOMITING [None]
